FAERS Safety Report 6166291-4 (Version None)
Quarter: 2009Q2

REPORT INFORMATION
  Report Type: 
  Country: None (occurrence: None)
  Receive Date: 20090422
  Receipt Date: 20090422
  Transmission Date: 20091009
  Serious: Yes (Other)
  Sender: FDA-Public Use
  Company Number: None

PATIENT
  Sex: Female
  Weight: 74.3899 kg

DRUGS (3)
  1. MS CONTIN [Suspect]
     Indication: CYSTITIS
     Dosage: 100 MG 1 PR 7 HRS LAST 2 YEARS
  2. MS CONTIN [Suspect]
     Indication: INTERVERTEBRAL DISC PROTRUSION
     Dosage: 100 MG 1 PR 7 HRS LAST 2 YEARS
  3. . [Concomitant]

REACTIONS (4)
  - DRUG WITHDRAWAL SYNDROME [None]
  - HYPERHIDROSIS [None]
  - PAIN [None]
  - WEIGHT INCREASED [None]
